FAERS Safety Report 8109524-7 (Version None)
Quarter: 2012Q1

REPORT INFORMATION
  Report Type: 
  Country: None (occurrence: None)
  Receive Date: 20120202
  Receipt Date: 20120112
  Transmission Date: 20120608
  Serious: No
  Sender: FDA-Public Use
  Company Number: US-AMGEN-USASP2011068005

PATIENT
  Age: 49 Year
  Sex: Female
  Weight: 71.8 kg

DRUGS (6)
  1. IBUPROFEN [Concomitant]
     Indication: RHEUMATOID ARTHRITIS
     Dosage: 800 MG, PRN
     Route: 048
  2. ENBREL [Suspect]
     Indication: RHEUMATOID ARTHRITIS
     Dosage: 50 MG, QWK
     Route: 058
     Dates: start: 20110711, end: 20111205
  3. ADDERALL 5 [Concomitant]
     Dosage: 10 MG, QID
  4. PLAQUENIL [Concomitant]
     Indication: RHEUMATOID ARTHRITIS
     Dosage: 200 MG, BID
     Route: 048
     Dates: start: 20101213, end: 20111228
  5. TREXALL [Concomitant]
     Indication: RHEUMATOID ARTHRITIS
     Dosage: 17.5 MG, QWK
     Dates: start: 20100419
  6. EFFEXOR XR [Concomitant]
     Indication: DEPRESSION
     Dosage: 150MG DAILY

REACTIONS (3)
  - PAIN IN EXTREMITY [None]
  - INJECTION SITE REACTION [None]
  - SINUSITIS [None]
